FAERS Safety Report 8538494-2 (Version None)
Quarter: 2012Q3

REPORT INFORMATION
  Report Type: 
  Country: None (occurrence: None)
  Receive Date: 20120718
  Receipt Date: 20120718
  Transmission Date: 20120928
  Serious: Yes (Hospitalization, Other)
  Sender: FDA-Public Use
  Company Number: None

PATIENT
  Sex: Female
  Weight: 108.4097 kg

DRUGS (1)
  1. DEPO-MEDROL [Suspect]
     Indication: PAIN
     Dates: start: 20120618

REACTIONS (1)
  - CONTRAINDICATION TO MEDICAL TREATMENT [None]
